FAERS Safety Report 14565233 (Version 1)
Quarter: 2018Q1

REPORT INFORMATION
  Report Type: Spontaneous
  Country: US (occurrence: US)
  Receive Date: 20180223
  Receipt Date: 20180223
  Transmission Date: 20180509
  Serious: No
  Sender: FDA-Public Use
  Company Number: US-ASTRAZENECA-2018SE13140

PATIENT
  Age: 75 Year
  Sex: Male

DRUGS (1)
  1. PRILOSEC OTC [Suspect]
     Active Substance: OMEPRAZOLE MAGNESIUM
     Dosage: 1 TABLET, 1 /DAY FOR 2 DAYS
     Route: 048
     Dates: start: 20180123

REACTIONS (2)
  - Eye swelling [Not Recovered/Not Resolved]
  - Eye discharge [Not Recovered/Not Resolved]

NARRATIVE: CASE EVENT DATE: 20180123
